FAERS Safety Report 8420268-4 (Version None)
Quarter: 2012Q2

REPORT INFORMATION
  Report Type: 
  Country: None (occurrence: None)
  Receive Date: 20120607
  Receipt Date: 20120531
  Transmission Date: 20120825
  Serious: Yes (Hospitalization, Other)
  Sender: FDA-Public Use
  Company Number: NG-ROXANE LABORATORIES, INC.-2012-RO-01349RO

PATIENT
  Age: 20 Year
  Sex: Female

DRUGS (2)
  1. DEXAMETHASONE [Suspect]
     Indication: WEIGHT INCREASED
     Dosage: 4 MG
  2. DEXAMETHASONE [Suspect]
     Dosage: 8 MG

REACTIONS (5)
  - VAGINAL DISCHARGE [None]
  - PYREXIA [None]
  - SUBSTANCE-INDUCED PSYCHOTIC DISORDER [None]
  - CATATONIA [None]
  - INSOMNIA [None]
